FAERS Safety Report 14102765 (Version 1)
Quarter: 2017Q4

REPORT INFORMATION
  Report Type: Spontaneous
  Country: NL (occurrence: NL)
  Receive Date: 20171018
  Receipt Date: 20171018
  Transmission Date: 20180321
  Serious: Yes (Hospitalization)
  Sender: FDA-Public Use
  Company Number: NL-MYLANLABS-2017M1064589

PATIENT
  Age: 61 Year
  Sex: Female
  Weight: 86 kg

DRUGS (1)
  1. VERAPAMIL HCL RETARD MYLAN 240 MG, TABLETTEN MET GEREGULEERDE AFGIFTE [Suspect]
     Active Substance: VERAPAMIL HYDROCHLORIDE
     Indication: ARRHYTHMIA
     Dosage: 1 PER DAG
     Route: 048
     Dates: start: 20130101

REACTIONS (5)
  - Pruritus [Unknown]
  - Muscular weakness [Unknown]
  - Rash erythematous [Unknown]
  - Inflammation [Unknown]
  - Pyrexia [Unknown]

NARRATIVE: CASE EVENT DATE: 20130101
